FAERS Safety Report 10062738 (Version 1)
Quarter: 2014Q2

REPORT INFORMATION
  Report Type: Report from Study
  Country: KR (occurrence: KR)
  Receive Date: 20140407
  Receipt Date: 20140407
  Transmission Date: 20141212
  Serious: Yes (Hospitalization)
  Sender: FDA-Public Use
  Company Number: KR-GLAXOSMITHKLINE-B0982608A

PATIENT
  Age: 53 Year
  Sex: Female
  Weight: 63 kg

DRUGS (5)
  1. TYKERB [Suspect]
     Indication: BREAST CANCER
     Dosage: 1250MG PER DAY
     Route: 048
     Dates: start: 20131129
  2. XELODA [Suspect]
     Indication: BREAST CANCER
     Dosage: 1650MG TWICE PER DAY
     Route: 048
     Dates: start: 20131129
  3. MICRONISED FLAVONOIDS [Concomitant]
     Indication: ANAL FISSURE
     Dosage: 500MG TWICE PER DAY
     Route: 048
     Dates: start: 20140114, end: 20140218
  4. RANITIDINE [Concomitant]
     Indication: PROPHYLAXIS
     Dosage: 300MG PER DAY
     Route: 048
     Dates: start: 201311, end: 20140218
  5. CHLORPHENAMINE [Concomitant]
     Indication: PRURITUS
     Dosage: 2MG TWICE PER DAY
     Route: 048
     Dates: start: 20140108, end: 20140218

REACTIONS (1)
  - Herpes zoster [Recovered/Resolved]
